FAERS Safety Report 6444822-4 (Version None)
Quarter: 2009Q4

REPORT INFORMATION
  Report Type: 
  Country: None (occurrence: None)
  Receive Date: 20091118
  Receipt Date: 20091106
  Transmission Date: 20100525
  Serious: Yes (Hospitalization, Other)
  Sender: FDA-Public Use
  Company Number: PHHY2009FR18303

PATIENT
  Age: 16 Year
  Sex: Female

DRUGS (6)
  1. NEORAL [Suspect]
     Indication: BONE MARROW TRANSPLANT
     Dosage: 90 MG, BID
     Dates: start: 20090202, end: 20090413
  2. CELLCEPT [Concomitant]
  3. VFEND [Concomitant]
  4. VISTIDE [Concomitant]
  5. DRIPTANE [Concomitant]
     Dosage: UNK
     Dates: end: 20090413
  6. ORACILLINE [Concomitant]

REACTIONS (7)
  - CHOLESTASIS [None]
  - CONVULSION [None]
  - CYTOLYTIC HEPATITIS [None]
  - HEPATITIS CHOLESTATIC [None]
  - HEPATOMEGALY [None]
  - HYPERTENSION [None]
  - JAUNDICE [None]
